FAERS Safety Report 5075728-3 (Version None)
Quarter: 2006Q3

REPORT INFORMATION
  Report Type: 
  Country: None (occurrence: None)
  Receive Date: 20060809
  Receipt Date: 20060801
  Transmission Date: 20061208
  Serious: Yes (Other)
  Sender: FDA-Public Use
  Company Number: 2006AP03586

PATIENT
  Age: 61 Year
  Weight: 42 kg

DRUGS (1)
  1. MEROPENEM [Suspect]

REACTIONS (2)
  - ACUTE RESPIRATORY FAILURE [None]
  - LUNG DISORDER [None]
